FAERS Safety Report 17836527 (Version 1)
Quarter: 2020Q2

REPORT INFORMATION
  Report Type: Report from Study
  Country: None (occurrence: US)
  Receive Date: 20200529
  Receipt Date: 20200529
  Transmission Date: 20200714
  Serious: Yes (Other)
  Sender: FDA-Public Use
  Company Number: US-ABBVIE-20K-163-3416777-00

PATIENT
  Sex: Female

DRUGS (1)
  1. VENCLEXTA [Suspect]
     Active Substance: VENETOCLAX
     Indication: PLASMA CELL MYELOMA RECURRENT
     Dosage: TAKE 8 TABLET(S) BY MOUTH DAILY
     Route: 048

REACTIONS (4)
  - Dizziness [Unknown]
  - Malignant neoplasm progression [Unknown]
  - Off label use [Unknown]
  - Blood count abnormal [Unknown]
